FAERS Safety Report 4336916-4 (Version None)
Quarter: 2004Q2

REPORT INFORMATION
  Report Type: 
  Country: None (occurrence: None)
  Receive Date: 20040408
  Receipt Date: 20040331
  Transmission Date: 20050107
  Serious: Yes (Other)
  Sender: FDA-Public Use
  Company Number: HQWYE316601APR04

PATIENT
  Age: 3 Week
  Sex: Male
  Weight: 0.9 kg

DRUGS (2)
  1. ZOSYN [Suspect]
     Indication: ESCHERICHIA INFECTION
     Dosage: INTRAVENOUS
     Route: 042
     Dates: start: 20040127, end: 20040204
  2. GENTAMICIN [Concomitant]

REACTIONS (1)
  - ATRIAL FLUTTER [None]
